FAERS Safety Report 5870697-8 (Version None)
Quarter: 2008Q3

REPORT INFORMATION
  Report Type: 
  Country: None (occurrence: None)
  Receive Date: 20080904
  Receipt Date: 20080904
  Transmission Date: 20090109
  Serious: Yes (Hospitalization)
  Sender: FDA-Public Use
  Company Number: PHEH1997US04331

PATIENT
  Sex: Female
  Weight: 47.3 kg

DRUGS (1)
  1. NEORAL [Suspect]
     Route: 048
     Dates: start: 19950319

REACTIONS (2)
  - NEPHROPATHY TOXIC [None]
  - RENAL IMPAIRMENT [None]
